FAERS Safety Report 25046967 (Version 1)
Quarter: 2025Q1

REPORT INFORMATION
  Report Type: Spontaneous
  Country: US (occurrence: US)
  Receive Date: 20250306
  Receipt Date: 20250306
  Transmission Date: 20250409
  Serious: No
  Sender: BAYER HEALTHCARE LLC
  Company Number: US-BAYER-2025A031590

PATIENT
  Sex: Male

DRUGS (7)
  1. ALEVE [Suspect]
     Active Substance: NAPROXEN SODIUM
     Indication: Product used for unknown indication
  2. ERGOCALCIFEROL [Concomitant]
     Active Substance: ERGOCALCIFEROL
  3. EZETIMIBE [Concomitant]
     Active Substance: EZETIMIBE
  4. CYCLOBENZAPRINE [Concomitant]
     Active Substance: CYCLOBENZAPRINE
  5. BACLOFEN [Concomitant]
     Active Substance: BACLOFEN
  6. AMPHETAMINE [Concomitant]
     Active Substance: AMPHETAMINE
  7. METHENAMINE [Concomitant]
     Active Substance: METHENAMINE

REACTIONS (1)
  - Nausea [None]
